FAERS Safety Report 8503026-1 (Version None)
Quarter: 2012Q3

REPORT INFORMATION
  Report Type: 
  Country: None (occurrence: None)
  Receive Date: 20120711
  Receipt Date: 20120702
  Transmission Date: 20120928
  Serious: Yes (Other)
  Sender: FDA-Public Use
  Company Number: JP-VERTEX PHARMACEUTICALS INC.-AE-2012-009787

PATIENT
  Age: 69 Year
  Sex: Male

DRUGS (6)
  1. INCIVEK [Suspect]
     Indication: HEPATITIS C
     Route: 048
     Dates: start: 20120518, end: 20120527
  2. PEGINTERFERON ALFA-2B [Concomitant]
     Indication: HEPATITIS C
     Route: 058
     Dates: start: 20120518
  3. RIBAVIRIN [Concomitant]
     Route: 048
  4. RIBAVIRIN [Concomitant]
     Route: 048
  5. INCIVEK [Suspect]
     Route: 048
     Dates: start: 20120528
  6. PEGINTERFERON ALFA-2B [Concomitant]
     Route: 058

REACTIONS (1)
  - RASH [None]
